FAERS Safety Report 20231531 (Version 4)
Quarter: 2022Q1

REPORT INFORMATION
  Report Type: Report from Study
  Country: CN (occurrence: CN)
  Receive Date: 20211227
  Receipt Date: 20220129
  Transmission Date: 20220423
  Serious: Yes (Other)
  Sender: FDA-Public Use
  Company Number: CN-NOVARTISPH-NVSC2020CN260747

PATIENT
  Age: 83 Year
  Sex: Male

DRUGS (21)
  1. ENTRESTO [Suspect]
     Active Substance: SACUBITRIL\VALSARTAN
     Indication: Cardiac failure chronic
     Dosage: 50 MG, UNKNOWN
     Route: 048
     Dates: start: 20200716, end: 20200718
  2. ENTRESTO [Suspect]
     Active Substance: SACUBITRIL\VALSARTAN
     Dosage: 25 MG, BID
     Route: 048
     Dates: start: 20200719, end: 20200812
  3. SALMONCAL [Concomitant]
     Indication: Pre-existing disease
     Dosage: 50 IU, UNKNOWN
     Route: 058
     Dates: start: 20200722, end: 20200812
  4. ALPRAZOLAM [Concomitant]
     Active Substance: ALPRAZOLAM
     Indication: Prophylaxis
     Dosage: 0.4 MG
     Route: 048
     Dates: start: 20200809, end: 20200810
  5. ATORVASTATIN CALCIUM [Concomitant]
     Active Substance: ATORVASTATIN CALCIUM
     Indication: Cardiac failure
     Dosage: 40 MG, UNKNOWN
     Route: 048
     Dates: start: 20200711, end: 20200812
  6. TRIMETAZIDINE DIHYDROCHLORIDE [Concomitant]
     Active Substance: TRIMETAZIDINE DIHYDROCHLORIDE
     Indication: Cardiac failure
     Dosage: 35 MG, UNKNOWN (SUSTAINED-RELEASE TABLETS)
     Route: 048
     Dates: start: 20200714, end: 20200812
  7. RABEPRAZOLE SODIUM [Concomitant]
     Active Substance: RABEPRAZOLE SODIUM
     Indication: Prophylaxis
     Dosage: 20 MG, UNKNOWN (ENTERIC-COATED CAPSULES)
     Route: 048
     Dates: start: 20200711, end: 20200812
  8. NICORANDIL [Concomitant]
     Active Substance: NICORANDIL
     Indication: Cardiac failure
     Dosage: 5 MG, UNKNOWN
     Route: 048
     Dates: start: 20200714, end: 20200812
  9. ISOSORBIDE MONONITRATE [Concomitant]
     Active Substance: ISOSORBIDE MONONITRATE
     Indication: Cardiac failure
     Dosage: 40 MG, UNKNOWN (SUSTAINED RELEASE TABLETS)
     Route: 048
     Dates: start: 20200714, end: 20200812
  10. METOPROLOL SUCCINATE [Concomitant]
     Active Substance: METOPROLOL SUCCINATE
     Indication: Cardiac failure
     Dosage: 47.5 MG, UNKNOWN (SUSTAINED-RELEASE TABLETS)
     Route: 048
     Dates: start: 20200716, end: 20200812
  11. KETOCID [Concomitant]
     Indication: Pre-existing disease
     Dosage: 1.26 G, UNKNOWN (COMPOUND ?-KETOACID TABLETS)
     Route: 048
     Dates: start: 20200719, end: 20200812
  12. ASPIRIN [Concomitant]
     Active Substance: ASPIRIN
     Indication: Cardiac failure
     Dosage: 0.1 G, UNKNOWN ( ENTERIC-COATED TABLETS)
     Route: 048
     Dates: start: 20200722, end: 20200821
  13. CLOPIDOGREL HYDROCHLORIDE [Concomitant]
     Active Substance: CLOPIDOGREL HYDROCHLORIDE
     Indication: Cardiac failure
     Dosage: 75 MG
     Route: 048
     Dates: start: 20200714, end: 20200720
  14. CLOPIDOGREL HYDROCHLORIDE [Concomitant]
     Active Substance: CLOPIDOGREL HYDROCHLORIDE
     Dosage: 75 MG, UNKNOWN
     Route: 048
     Dates: start: 20200721, end: 20200812
  15. FEBUXOSTAT [Concomitant]
     Active Substance: FEBUXOSTAT
     Indication: Pre-existing disease
     Dosage: 40 MG, UNKNOWN
     Route: 048
     Dates: start: 20200721, end: 20200812
  16. FOLIC ACID [Concomitant]
     Active Substance: FOLIC ACID
     Indication: Pre-existing disease
     Dosage: 5 MG
     Route: 048
     Dates: start: 20200712, end: 20200812
  17. VITAMIN C [Concomitant]
     Active Substance: ASCORBIC ACID
     Indication: Cardiac failure
     Dosage: 0.2 G
     Route: 048
     Dates: start: 20200714, end: 20200719
  18. DOBUTAMINE [Concomitant]
     Active Substance: DOBUTAMINE HYDROCHLORIDE
     Indication: Cardiac failure
     Dosage: 120 MG
     Route: 042
     Dates: start: 20200719, end: 20200719
  19. LOXOPROFEN SODIUM [Concomitant]
     Active Substance: LOXOPROFEN SODIUM
     Indication: Pre-existing disease
     Dosage: 60 MG
     Route: 048
     Dates: start: 20200719, end: 20200719
  20. CALCIUM CARBONATE\CHOLECALCIFEROL [Concomitant]
     Active Substance: CALCIUM CARBONATE\CHOLECALCIFEROL
     Indication: Pre-existing disease
     Dosage: 0.6 G
     Route: 048
     Dates: start: 20200716, end: 20200807
  21. CEFOPERAZONE\TAZOBACTAM SODIUM [Concomitant]
     Active Substance: CEFOPERAZONE\TAZOBACTAM SODIUM
     Indication: Pre-existing disease
     Dosage: 2.25 G
     Route: 042
     Dates: start: 20200712, end: 20200720

REACTIONS (6)
  - Hyperkalaemia [Recovered/Resolved]
  - Hyperhomocysteinaemia [Not Recovered/Not Resolved]
  - Hypoproteinaemia [Not Recovered/Not Resolved]
  - Herpes zoster [Recovered/Resolved]
  - Underdose [Recovered/Resolved]
  - Wrong technique in product usage process [Recovered/Resolved]

NARRATIVE: CASE EVENT DATE: 20200719
